FAERS Safety Report 5138146-5 (Version None)
Quarter: 2006Q4

REPORT INFORMATION
  Report Type: 
  Country: None (occurrence: None)
  Receive Date: 20061030
  Receipt Date: 20060424
  Transmission Date: 20070319
  Serious: No
  Sender: FDA-Public Use
  Company Number: US-GLAXOSMITHKLINE-A0602987A

PATIENT
  Sex: Male

DRUGS (9)
  1. ADVAIR HFA [Suspect]
     Indication: EMPHYSEMA
     Dosage: 2PUFF TWICE PER DAY
     Route: 055
  2. UNKNOWN MEDICATION [Concomitant]
  3. SPIRIVA [Concomitant]
  4. ASPIRIN [Concomitant]
  5. METOPROLOL TARTRATE [Concomitant]
  6. LOVASTATIN [Concomitant]
  7. LISINOPRIL [Concomitant]
  8. FUROSEMIDE [Concomitant]
  9. ALLOPURINOL [Concomitant]

REACTIONS (3)
  - INCREASED BRONCHIAL SECRETION [None]
  - NOCTURNAL DYSPNOEA [None]
  - RASH [None]
